FAERS Safety Report 8539713 (Version 3)
Quarter: 2012Q4

REPORT INFORMATION
  Report Type: 
  Country: US (occurrence: US)
  Receive Date: 20120502
  Receipt Date: 20121003
  Transmission Date: 20130627
  Serious: Yes (Hospitalization)
  Sender: FDA-Public Use
  Company Number: US-BAYER-2012-041882

PATIENT
  Age: 24 Year
  Sex: Female
  Weight: 58.96 kg

DRUGS (6)
  1. YASMIN [Suspect]
     Dosage: UNK
     Dates: start: 200608, end: 201106
  2. OCELLA [Suspect]
     Dosage: UNK
     Dates: start: 200608, end: 201106
  3. DILAUDID [Concomitant]
     Indication: PAIN
  4. ALBUTEROL [Concomitant]
     Indication: BRONCHOSPASM
  5. ATROVENT [Concomitant]
     Indication: BRONCHOSPASM
  6. LEVAQUIN [Concomitant]

REACTIONS (6)
  - Thrombosis [None]
  - Embolism [None]
  - Pulmonary embolism [None]
  - Deep vein thrombosis [None]
  - Pain [None]
  - Injury [None]
